FAERS Safety Report 16844341 (Version 1)
Quarter: 2019Q3

REPORT INFORMATION
  Report Type: Spontaneous
  Country: US (occurrence: US)
  Receive Date: 20190924
  Receipt Date: 20190924
  Transmission Date: 20191005
  Serious: No
  Sender: FDA-Public Use
  Company Number: US-ALLERGAN-1856616US

PATIENT
  Age: 17 Year
  Sex: Male

DRUGS (2)
  1. SAPHRIS [Suspect]
     Active Substance: ASENAPINE MALEATE
     Indication: SCHIZOPHRENIA
     Dosage: UNK
     Route: 065
  2. FORZINE [Concomitant]
     Dosage: UNK

REACTIONS (2)
  - Schizophrenia [Unknown]
  - Off label use [Unknown]
